FAERS Safety Report 15298589 (Version 1)
Quarter: 2018Q4

REPORT INFORMATION
  Report Type: Spontaneous
  Country: JP (occurrence: JP)
  Receive Date: 20180820
  Receipt Date: 20180820
  Transmission Date: 20190204
  Serious: Yes (Life-Threatening, Hospitalization, Disabling)
  Sender: FDA-Public Use
  Company Number: JP-NAPPMUNDI-GBR-2017-0045709

PATIENT
  Age: 65 Year
  Sex: Female

DRUGS (14)
  1. PACLITAXEL. [Suspect]
     Active Substance: PACLITAXEL
     Indication: GASTRIC CANCER STAGE III
     Dosage: 100 MG, DAILY
     Route: 041
     Dates: start: 20160729, end: 20160909
  2. MEDICON                            /00048102/ [Concomitant]
     Active Substance: DEXTROMETHORPHAN HYDROBROMIDE
     Dosage: 45 MG, DAILY
  3. TAKECAB [Concomitant]
     Active Substance: VONOPRAZAN FUMURATE
     Dosage: 20 MG, DAILY
  4. RAMUCIRUMAB [Suspect]
     Active Substance: RAMUCIRUMAB
     Indication: GASTRIC CANCER STAGE III
     Dosage: 100 MG, DAILY
     Route: 041
     Dates: start: 20160729, end: 20160909
  5. DEPAS [Concomitant]
     Active Substance: ETIZOLAM
     Dosage: 0.5 MG, DAILY
  6. OXINORM (OXYCODONE HYDROCHLORIDE) [Suspect]
     Active Substance: OXYCODONE HYDROCHLORIDE
     Indication: PAIN
     Dosage: 1 G, PRN
     Route: 065
  7. ENSURE [Concomitant]
     Active Substance: AMINO ACIDS\DEXTROSE\ELECTROLYTES NOS\SOYBEAN OIL\VITAMINS
     Dosage: 250 ML, DAILY
  8. ALLOID G [Concomitant]
     Active Substance: SODIUM ALGINATE
     Dosage: 30 ML, DAILY
  9. MAGNESIUM OXIDE. [Concomitant]
     Active Substance: MAGNESIUM OXIDE
     Dosage: 3 G, DAILY
  10. FENTOS [Concomitant]
     Active Substance: FENTANYL
     Dosage: 2 MG, DAILY
  11. LYRICA [Concomitant]
     Active Substance: PREGABALIN
     Dosage: 150 MG, DAILY
  12. CYMBALTA [Concomitant]
     Active Substance: DULOXETINE HYDROCHLORIDE
     Dosage: 20 MG, DAILY
  13. VONOPRAZAN FUMARATE [Concomitant]
     Active Substance: VONOPRAZAN FUMURATE
     Indication: GASTRIC ULCER
     Dosage: 20 MG, DAILY
     Dates: start: 20160725
  14. ADOFEED [Concomitant]
     Active Substance: FLURBIPROFEN
     Dosage: 1 DF, DAILY

REACTIONS (1)
  - Oesophagobronchial fistula [Not Recovered/Not Resolved]

NARRATIVE: CASE EVENT DATE: 20160911
